FAERS Safety Report 7339496-4 (Version None)
Quarter: 2011Q1

REPORT INFORMATION
  Report Type: 
  Country: None (occurrence: None)
  Receive Date: 20110308
  Receipt Date: 20110120
  Transmission Date: 20110831
  Serious: No
  Sender: FDA-Public Use
  Company Number: US-AMGEN-USASP2011003669

PATIENT
  Age: 82 Year
  Sex: Female
  Weight: 61.2 kg

DRUGS (5)
  1. CALCIUM +D3 [Concomitant]
  2. FISH OIL [Concomitant]
  3. PROLIA [Suspect]
     Indication: OSTEOPOROSIS
     Dosage: 60 MG, Q6MO
     Dates: start: 20100101
  4. ASPIRIN [Concomitant]
  5. MULTIVITAMIN                       /00097801/ [Concomitant]

REACTIONS (1)
  - TOOTH FRACTURE [None]
